FAERS Safety Report 24028395 (Version 1)
Quarter: 2024Q2

REPORT INFORMATION
  Report Type: Spontaneous
  Country: US (occurrence: None)
  Receive Date: 20240628
  Receipt Date: 20240628
  Transmission Date: 20240716
  Serious: Yes (Death)
  Sender: FDA-Public Use
  Company Number: None

PATIENT
  Age: 65 Year
  Sex: Male
  Weight: 65.6 kg

DRUGS (1)
  1. CISPLATIN [Suspect]
     Active Substance: CISPLATIN
     Dates: end: 20230622

REACTIONS (7)
  - Malignant neoplasm progression [None]
  - Pulmonary mass [None]
  - Lymphadenopathy [None]
  - Hepatic lesion [None]
  - Neuroendocrine carcinoma [None]
  - Lung cancer metastatic [None]
  - Terminal state [None]

NARRATIVE: CASE EVENT DATE: 20240526
